FAERS Safety Report 17526826 (Version 3)
Quarter: 2020Q2

REPORT INFORMATION
  Report Type: Report from Study
  Country: US (occurrence: US)
  Receive Date: 20200311
  Receipt Date: 20200423
  Transmission Date: 20200713
  Serious: Yes (Other)
  Sender: FDA-Public Use
  Company Number: NVSC2020US068283

PATIENT
  Age: 65 Year
  Sex: Male

DRUGS (4)
  1. LOSARTAN POTASSIUM. [Suspect]
     Active Substance: LOSARTAN POTASSIUM
     Indication: PRODUCT USED FOR UNKNOWN INDICATION
     Dosage: UNK
     Route: 065
  2. ENTRESTO [Suspect]
     Active Substance: SACUBITRIL\VALSARTAN
     Indication: CARDIAC FAILURE CHRONIC
     Dosage: 100 MG (49/51 MG), BID
     Route: 048
     Dates: start: 20200229
  3. ENTRESTO [Suspect]
     Active Substance: SACUBITRIL\VALSARTAN
     Dosage: 200 MG (97/103 MG), BID
     Route: 048
     Dates: start: 20200408
  4. ENTRESTO [Suspect]
     Active Substance: SACUBITRIL\VALSARTAN
     Dosage: 4 DF (49/51 MG), QD (TWO TABS IN THE MORNING AND 2 TABS IN THE EVENING)
     Route: 048

REACTIONS (2)
  - Haematochezia [Unknown]
  - Movement disorder [Recovering/Resolving]

NARRATIVE: CASE EVENT DATE: 202002
